FAERS Safety Report 16983667 (Version 3)
Quarter: 2019Q4

REPORT INFORMATION
  Report Type: Spontaneous
  Country: US (occurrence: US)
  Receive Date: 20191101
  Receipt Date: 20191213
  Transmission Date: 20200122
  Serious: Yes (Other)
  Sender: FDA-Public Use
  Company Number: US-PFIZER INC-2019469956

PATIENT
  Age: 80 Year
  Sex: Female
  Weight: 83.9 kg

DRUGS (2)
  1. TIKOSYN [Suspect]
     Active Substance: DOFETILIDE
     Indication: ATRIAL FIBRILLATION
     Dosage: 250 UG, UNK
  2. TIKOSYN [Suspect]
     Active Substance: DOFETILIDE
     Dosage: 250 UG, 2X/DAY [250 MCG CAPSULE TWICE DAILY]
     Route: 048

REACTIONS (3)
  - Cough [Unknown]
  - Dry throat [Unknown]
  - Diabetes mellitus [Unknown]
